FAERS Safety Report 16721168 (Version 1)
Quarter: 2019Q3

REPORT INFORMATION
  Report Type: Spontaneous
  Country: US (occurrence: GB)
  Receive Date: 20190820
  Receipt Date: 20190820
  Transmission Date: 20191005
  Serious: Yes (Hospitalization)
  Sender: FDA-Public Use
  Company Number: GB-ALLERGAN-1930827US

PATIENT
  Sex: Female
  Weight: 3.03 kg

DRUGS (1)
  1. FLUOXETINE HCL UNK [Suspect]
     Active Substance: FLUOXETINE HYDROCHLORIDE
     Indication: PRODUCT USED FOR UNKNOWN INDICATION
     Dosage: 20 MG, QD
     Route: 064

REACTIONS (5)
  - Hypoventilation [Recovering/Resolving]
  - Hypoxia [Recovering/Resolving]
  - Apnoea [Recovering/Resolving]
  - Cyanosis [Recovering/Resolving]
  - Pregnancy [Unknown]
